FAERS Safety Report 5244223-0 (Version None)
Quarter: 2007Q1

REPORT INFORMATION
  Report Type: 
  Country: None (occurrence: None)
  Receive Date: 20070216
  Receipt Date: 20070131
  Transmission Date: 20070707
  Serious: Yes (Death, Hospitalization)
  Sender: FDA-Public Use
  Company Number: FABR-11799

PATIENT
  Age: 56 Year
  Sex: Male
  Weight: 62 kg

DRUGS (1)
  1. FABRAZYME [Suspect]
     Indication: FABRY'S DISEASE
     Dosage: 1MG/KG Q2WKS; IV
     Route: 042
     Dates: start: 20050216

REACTIONS (14)
  - BLOOD CREATININE INCREASED [None]
  - BRAIN STEM ISCHAEMIA [None]
  - CARDIAC ARREST [None]
  - COMA [None]
  - CONDITION AGGRAVATED [None]
  - DEVICE RELATED INFECTION [None]
  - ENCEPHALOPATHY [None]
  - HYPERHIDROSIS [None]
  - MULTI-ORGAN FAILURE [None]
  - MYOCARDIAL INFARCTION [None]
  - NAUSEA [None]
  - PERITONEAL DIALYSIS [None]
  - SEPSIS [None]
  - VOMITING [None]
